FAERS Safety Report 8862766 (Version 1)
Quarter: 2012Q4

REPORT INFORMATION
  Report Type: 
  Country: US (occurrence: US)
  Receive Date: 20121026
  Receipt Date: 20121026
  Transmission Date: 20130627
  Serious: No
  Sender: FDA-Public Use
  Company Number: US-ALLERGAN-1205312US

PATIENT
  Age: 90 Year
  Sex: Male

DRUGS (2)
  1. ALPHAGAN [Suspect]
     Indication: INTRAOCULAR PRESSURE
     Dosage: 2 Gtt, tid
     Route: 047
  2. LUMIGAN [Suspect]
     Indication: SENSATION OF PRESSURE IN EYE
     Dosage: 2 Gtt, qhs
     Route: 047

REACTIONS (2)
  - Blood glucose increased [Recovered/Resolved]
  - Nocturia [Recovered/Resolved]
